FAERS Safety Report 5396575-9 (Version None)
Quarter: 2007Q3

REPORT INFORMATION
  Report Type: 
  Country: None (occurrence: None)
  Receive Date: 20070718
  Receipt Date: 20070307
  Transmission Date: 20080115
  Serious: Yes (Hospitalization, Disabling, Other)
  Sender: FDA-Public Use
  Company Number: 2006141557

PATIENT
  Age: 42 Year
  Sex: Male
  Weight: 65.8 kg

DRUGS (2)
  1. CELEBREX [Suspect]
     Indication: BACK PAIN
     Dosage: 100 MG (100 MG, 1 IN 1 D)
     Dates: start: 19990618
  2. CELEBREX [Suspect]
     Indication: PAIN
     Dosage: 100 MG (100 MG, 1 IN 1 D)
     Dates: start: 19990618

REACTIONS (2)
  - CORONARY ARTERY DISEASE [None]
  - MYOCARDIAL INFARCTION [None]
